FAERS Safety Report 13957087 (Version 1)
Quarter: 2017Q3

REPORT INFORMATION
  Report Type: Spontaneous
  Country: US (occurrence: US)
  Receive Date: 20170912
  Receipt Date: 20170912
  Transmission Date: 20171128
  Serious: No
  Sender: FDA-Public Use
  Company Number: US-BAUSCH-BL-2017-001522

PATIENT
  Sex: Male

DRUGS (2)
  1. COLAZAL [Suspect]
     Active Substance: BALSALAZIDE DISODIUM
     Indication: CROHN^S DISEASE
     Route: 048
  2. COLAZAL [Suspect]
     Active Substance: BALSALAZIDE DISODIUM
     Route: 065

REACTIONS (1)
  - Treatment noncompliance [Unknown]
